FAERS Safety Report 8423166-5 (Version None)
Quarter: 2012Q2

REPORT INFORMATION
  Report Type: 
  Country: None (occurrence: None)
  Receive Date: 20120608
  Receipt Date: 20120605
  Transmission Date: 20120825
  Serious: Yes (Death, Hospitalization)
  Sender: FDA-Public Use
  Company Number: JP-JNJFOC-20120516579

PATIENT
  Age: 65 Year
  Sex: Male

DRUGS (3)
  1. AVAPRO [Concomitant]
     Route: 048
  2. DIFLUNISAL [Concomitant]
     Route: 048
  3. GALANTAMINE HYDROBROMIDE [Suspect]
     Indication: DEMENTIA ALZHEIMER'S TYPE
     Route: 048
     Dates: start: 20110913

REACTIONS (4)
  - CARDIAC FAILURE [None]
  - SEPTIC SHOCK [None]
  - HEPATIC NEOPLASM [None]
  - SEPSIS [None]
